FAERS Safety Report 6436943-7 (Version None)
Quarter: 2009Q4

REPORT INFORMATION
  Report Type: 
  Country: None (occurrence: None)
  Receive Date: 20091111
  Receipt Date: 20090127
  Transmission Date: 20100525
  Serious: Yes (Hospitalization, Other)
  Sender: FDA-Public Use
  Company Number: PHHY2009GB02312

PATIENT
  Age: 72 Year
  Sex: Female

DRUGS (15)
  1. PANTOPRAZOLE [Suspect]
     Indication: MIGRAINE
     Dosage: UNK
     Route: 048
  2. CARBAMAZEPINE [Suspect]
     Indication: EPILEPSY
     Dosage: 200 MG, TID
     Route: 048
  3. ANADIN [Suspect]
     Indication: MIGRAINE
     Dosage: UNK
     Route: 048
  4. ALENDRONIC ACID [Suspect]
     Indication: OSTEOARTHRITIS
     Dosage: UNK
     Route: 048
  5. CALCICHEW [Suspect]
     Indication: OSTEOARTHRITIS
     Dosage: ! DF DAILY
     Route: 048
  6. CODEINE PHOSPHATE [Suspect]
     Indication: MIGRAINE
     Dosage: UNK
     Route: 048
  7. GAVISCON [Suspect]
     Dosage: UNK
     Route: 048
  8. LEVOTHYROXINE SODIUM [Suspect]
     Indication: HYPOTHYROIDISM
     Dosage: 100 UG, QD
     Route: 048
  9. RISEDRONATE SODIUM [Suspect]
     Indication: OSTEOARTHRITIS
     Dosage: 35 MG, QD
     Route: 048
  10. SERETIDE [Suspect]
     Indication: ASTHMA
     Dosage: 1 DF, BID
  11. SERETIDE [Suspect]
     Indication: MIGRAINE
  12. VENTOLIN [Suspect]
     Indication: ASTHMA
     Dosage: 1 DF, BID
  13. WARFARIN SODIUM [Suspect]
     Indication: DEEP VEIN THROMBOSIS
     Dosage: 1 DF, QD
     Route: 048
  14. ZOLMITRIPTAN [Suspect]
     Indication: MIGRAINE
     Dosage: UNK
     Route: 048
  15. ACETAMINOPHEN [Suspect]
     Dosage: UNK

REACTIONS (3)
  - CEREBROVASCULAR ACCIDENT [None]
  - HEMIPARESIS [None]
  - WALKING AID USER [None]
